FAERS Safety Report 14158480 (Version 1)
Quarter: 2017Q4

REPORT INFORMATION
  Report Type: Spontaneous
  Country: GB (occurrence: GB)
  Receive Date: 20171103
  Receipt Date: 20171103
  Transmission Date: 20180321
  Serious: Yes (Hospitalization)
  Sender: FDA-Public Use
  Company Number: GB-MYLANLABS-2017M1068297

PATIENT
  Age: 85 Year
  Sex: Male

DRUGS (1)
  1. FLUOROURACIL. [Suspect]
     Active Substance: FLUOROURACIL
     Indication: ACTINIC KERATOSIS
     Dosage: 5%; USED UP TO FOUR TIMES A DAY
     Route: 061

REACTIONS (5)
  - Skin ulcer [Recovered/Resolved]
  - Eczema [Recovered/Resolved]
  - Pseudomonas infection [Recovered/Resolved]
  - Drug administered at inappropriate site [Recovered/Resolved]
  - Drug administration error [Recovered/Resolved]
